FAERS Safety Report 5862990-X (Version None)
Quarter: 2008Q3

REPORT INFORMATION
  Report Type: 
  Country: None (occurrence: None)
  Receive Date: 20080828
  Receipt Date: 20080814
  Transmission Date: 20090109
  Serious: Yes (Hospitalization)
  Sender: FDA-Public Use
  Company Number: GB-VALEANT-2008VX001647

PATIENT
  Age: 70 Year
  Sex: Male

DRUGS (1)
  1. MESTINON [Suspect]
     Route: 065

REACTIONS (2)
  - DYSPHAGIA [None]
  - LIVER ABSCESS [None]
